FAERS Safety Report 6430790-8 (Version None)
Quarter: 2009Q4

REPORT INFORMATION
  Report Type: 
  Country: None (occurrence: None)
  Receive Date: 20091105
  Receipt Date: 20091105
  Transmission Date: 20100525
  Serious: Yes (Life-Threatening)
  Sender: FDA-Public Use
  Company Number: None

PATIENT
  Age: 45 Year
  Sex: Female
  Weight: 70.7611 kg

DRUGS (1)
  1. IOPHEN-C NR LIQUID QTY:  240 QUALITEST [Suspect]
     Indication: BRONCHITIS
     Dosage: 1 TO 2 TEASPOONSFUL EVERY 4-6 HOURS BUCCAL
     Route: 002
     Dates: start: 20091102, end: 20091102

REACTIONS (2)
  - FALL [None]
  - LOSS OF CONSCIOUSNESS [None]
